FAERS Safety Report 6093562-2 (Version None)
Quarter: 2009Q1

REPORT INFORMATION
  Report Type: 
  Country: None (occurrence: None)
  Receive Date: 20090226
  Receipt Date: 20090220
  Transmission Date: 20090719
  Serious: No
  Sender: FDA-Public Use
  Company Number: GB-ABBOTT-09P-167-0495914-00

PATIENT
  Sex: Male

DRUGS (1)
  1. SEVOFLURANE [Suspect]
     Indication: ANAESTHESIA
     Dosage: 1 (UNKNOWN DOSE UNIT)

REACTIONS (1)
  - UNWANTED AWARENESS DURING ANAESTHESIA [None]
